FAERS Safety Report 7957350-1 (Version None)
Quarter: 2011Q4

REPORT INFORMATION
  Report Type: 
  Country: None (occurrence: None)
  Receive Date: 20111205
  Receipt Date: 20111128
  Transmission Date: 20120403
  Serious: Yes (Other)
  Sender: FDA-Public Use
  Company Number: PHHY2011DK91024

PATIENT
  Sex: Male

DRUGS (2)
  1. AMOXICILLIN [Suspect]
     Indication: PNEUMONIA
     Dosage: 1000 MG, BID
     Route: 048
     Dates: start: 20110708, end: 20110715
  2. CHANTIX [Interacting]
     Indication: TOBACCO USER
     Dosage: UNK
     Route: 048
     Dates: start: 20110713, end: 20110816

REACTIONS (2)
  - DRUG INTERACTION [None]
  - HEPATITIS [None]
